FAERS Safety Report 8189340-0 (Version None)
Quarter: 2012Q1

REPORT INFORMATION
  Report Type: 
  Country: None (occurrence: None)
  Receive Date: 20120307
  Receipt Date: 20120227
  Transmission Date: 20120608
  Serious: Yes (Hospitalization, Other)
  Sender: FDA-Public Use
  Company Number: US-BAYER-2011-076321

PATIENT
  Age: 40 Year
  Sex: Female
  Weight: 95.238 kg

DRUGS (14)
  1. GAS-X [Concomitant]
  2. TREXIMET [Concomitant]
     Dosage: UNK
     Dates: start: 20090101, end: 20100601
  3. SUMATRIPTAN [Concomitant]
     Dosage: 100 MG, UNK
     Dates: start: 20100405, end: 20100706
  4. YAZ [Suspect]
     Indication: PREMENSTRUAL SYNDROME
     Dosage: UNK
     Dates: start: 20090501, end: 20100601
  5. YAZ [Suspect]
  6. NEXIUM [Concomitant]
     Dosage: 40 MG, UNK
     Dates: start: 20090530, end: 20101003
  7. PROMETHAZINE [Concomitant]
     Dosage: 50 MG, UNK
     Dates: start: 20100322, end: 20100506
  8. PROZAC [Concomitant]
     Dosage: UNK
     Dates: start: 20010101, end: 20111001
  9. ROLAIDS [Concomitant]
  10. LEVOTHYROXINE SODIUM [Concomitant]
     Dosage: UNK
     Dates: start: 20060101
  11. METHADON HCL TAB [Concomitant]
     Dosage: 10 MG, UNK
     Dates: start: 20100304
  12. TIZANIDINE HCL [Concomitant]
     Dosage: 4 MG, UNK
     Dates: start: 20100329, end: 20100811
  13. CLONAZEPAM [Concomitant]
     Dosage: 1 MG, UNK
     Dates: start: 20100315, end: 20100408
  14. IMITREX [Concomitant]
     Dosage: UNK
     Dates: start: 20090101

REACTIONS (9)
  - INJURY [None]
  - GALLBLADDER DISORDER [None]
  - PULMONARY EMBOLISM [None]
  - DEEP VEIN THROMBOSIS [None]
  - DEPRESSION [None]
  - MYOCARDIAL INFARCTION [None]
  - CEREBROVASCULAR ACCIDENT [None]
  - PAIN [None]
  - FEAR [None]
